FAERS Safety Report 15781710 (Version 1)
Quarter: 2019Q1

REPORT INFORMATION
  Report Type: Spontaneous
  Country: US (occurrence: US)
  Receive Date: 20190102
  Receipt Date: 20190102
  Transmission Date: 20190417
  Serious: No
  Sender: FDA-Public Use
  Company Number: US-TEVA-2018-US-993840

PATIENT
  Age: 9 Year
  Sex: Male

DRUGS (3)
  1. GUANFACINE. [Concomitant]
     Active Substance: GUANFACINE
  2. DEXMETHYLPHENIDATE [Suspect]
     Active Substance: DEXMETHYLPHENIDATE HYDROCHLORIDE
     Indication: ATTENTION DEFICIT/HYPERACTIVITY DISORDER
     Dosage: EXTENDED-RELEASE CAPSULES ?INCREASED TO 15 MG AND THEN TO 20 MG AT UNKNOWN DATES
     Dates: start: 20181106
  3. DEXMETHYLPHENIDATE [Suspect]
     Active Substance: DEXMETHYLPHENIDATE HYDROCHLORIDE
     Dosage: 5 MILLIGRAM DAILY; IMMEDIATE RELEASE  CAPSULES ?DECREASED TO THE 2.5 MG TABLETS AT AN UNKNOWN DATE

REACTIONS (5)
  - Physical assault [Unknown]
  - Weight decreased [Unknown]
  - Screaming [Unknown]
  - Abnormal behaviour [Unknown]
  - Memory impairment [Unknown]

NARRATIVE: CASE EVENT DATE: 20181106
